FAERS Safety Report 22006585 (Version 4)
Quarter: 2023Q2

REPORT INFORMATION
  Report Type: Spontaneous
  Country: US (occurrence: US)
  Receive Date: 20230217
  Receipt Date: 20230529
  Transmission Date: 20230721
  Serious: Yes (Other)
  Sender: FDA-Public Use
  Company Number: US-BRISTOL-MYERS SQUIBB COMPANY-2023-020323

PATIENT
  Age: 74 Year
  Sex: Female

DRUGS (1)
  1. REVLIMID [Suspect]
     Active Substance: LENALIDOMIDE
     Indication: B-cell lymphoma
     Dosage: TAKE 1 CAPSULE BY MOUTH EVERY DAY ON
     Route: 048

REACTIONS (6)
  - White blood cell count decreased [Unknown]
  - Product dose omission in error [Unknown]
  - Haemoglobin decreased [Unknown]
  - Constipation [Unknown]
  - Taste disorder [Unknown]
  - Cough [Unknown]
